FAERS Safety Report 10191107 (Version 1)
Quarter: 2014Q2

REPORT INFORMATION
  Report Type: Spontaneous
  Country: US (occurrence: None)
  Receive Date: 20140521
  Receipt Date: 20140521
  Transmission Date: 20141212
  Serious: No
  Sender: FDA-Public Use
  Company Number: None

PATIENT
  Age: 87 Year
  Sex: Female

DRUGS (8)
  1. TARCEVA [Suspect]
     Indication: LUNG NEOPLASM MALIGNANT
     Dosage: 3 TABLETS, QD, ORAL
     Route: 048
     Dates: start: 20140407, end: 20140501
  2. PROZAC [Concomitant]
  3. TOPROL [Concomitant]
  4. PRILOSEC [Concomitant]
  5. ONDANSETRON [Concomitant]
  6. PRAVACHOL [Concomitant]
  7. LYRICA [Concomitant]
  8. XARELTO [Concomitant]

REACTIONS (1)
  - Nausea [None]
